FAERS Safety Report 17967216 (Version 2)
Quarter: 2021Q2

REPORT INFORMATION
  Report Type: Spontaneous
  Country: JP (occurrence: JP)
  Receive Date: 20200701
  Receipt Date: 20210423
  Transmission Date: 20210717
  Serious: Yes (Death, Other)
  Sender: FDA-Public Use
  Company Number: NVSJ2020JP006279

PATIENT

DRUGS (1)
  1. TASIGNA [Suspect]
     Active Substance: NILOTINIB
     Indication: CHRONIC MYELOID LEUKAEMIA
     Dosage: ADMINISTERED FROM 2?3 YEARS AGO
     Route: 048

REACTIONS (2)
  - Cholelithiasis [Recovered/Resolved]
  - Cerebral haemorrhage [Fatal]
